FAERS Safety Report 8033587-0 (Version None)
Quarter: 2011Q4

REPORT INFORMATION
  Report Type: 
  Country: None (occurrence: None)
  Receive Date: 20111223
  Receipt Date: 20111213
  Transmission Date: 20120403
  Serious: Yes (Other)
  Sender: FDA-Public Use
  Company Number: 2011SP058267

PATIENT
  Age: 61 Year
  Sex: Female
  Weight: 57 kg

DRUGS (4)
  1. OMEPRAZOLE [Concomitant]
  2. CETIRIZINE [Concomitant]
  3. SULFASALAZINE [Concomitant]
  4. NASONEX [Suspect]
     Indication: UPPER-AIRWAY COUGH SYNDROME
     Dosage: 2 DF;QD
     Dates: start: 20111006, end: 20111130

REACTIONS (2)
  - ACCIDENTAL EXPOSURE [None]
  - VISUAL IMPAIRMENT [None]
